FAERS Safety Report 7508169-7 (Version None)
Quarter: 2011Q2

REPORT INFORMATION
  Report Type: 
  Country: None (occurrence: None)
  Receive Date: 20110527
  Receipt Date: 20100604
  Transmission Date: 20111010
  Serious: No
  Sender: FDA-Public Use
  Company Number: US-MYLANLABS-2010S1010114

PATIENT
  Age: 40 Year
  Sex: Male
  Weight: 77.11 kg

DRUGS (1)
  1. BUPROPION HYDROCHLORIDE [Suspect]
     Indication: DEPRESSION
     Route: 048
     Dates: start: 20100301, end: 20100603

REACTIONS (2)
  - HAIR TEXTURE ABNORMAL [None]
  - ALOPECIA [None]
